FAERS Safety Report 11427858 (Version 1)
Quarter: 2015Q3

REPORT INFORMATION
  Report Type: Spontaneous
  Country: GB (occurrence: None)
  Receive Date: 20150826
  Receipt Date: 20150826
  Transmission Date: 20151125
  Serious: Yes (Other)
  Sender: FDA-Public Use
  Company Number: COL_20515_2015

PATIENT
  Age: 5 Year
  Sex: Male
  Weight: 20.9 kg

DRUGS (1)
  1. COLGATE DURAPHAT [Suspect]
     Active Substance: SODIUM FLUORIDE
     Indication: DENTAL DISORDER PROPHYLAXIS
     Route: 061

REACTIONS (5)
  - Thirst [None]
  - White blood cell count increased [None]
  - Polyuria [None]
  - Polydipsia [None]
  - Incorrect dose administered [None]

NARRATIVE: CASE EVENT DATE: 20150521
